FAERS Safety Report 6060805-0 (Version None)
Quarter: 2009Q1

REPORT INFORMATION
  Report Type: 
  Country: None (occurrence: None)
  Receive Date: 20090202
  Receipt Date: 20090126
  Transmission Date: 20090719
  Serious: Yes (Other)
  Sender: FDA-Public Use
  Company Number: PHHY2008NL30479

PATIENT
  Sex: Female

DRUGS (1)
  1. MYFORTIC [Suspect]
     Dosage: UNK
     Dates: end: 20090101

REACTIONS (2)
  - GUILLAIN-BARRE SYNDROME [None]
  - PARAESTHESIA [None]
